FAERS Safety Report 25013349 (Version 2)
Quarter: 2025Q2

REPORT INFORMATION
  Report Type: Spontaneous
  Country: SE (occurrence: SE)
  Receive Date: 20250226
  Receipt Date: 20250506
  Transmission Date: 20250716
  Serious: Yes (Hospitalization)
  Sender: ROCHE
  Company Number: SE-002147023-NVSC2025SE028512

PATIENT
  Sex: Female

DRUGS (2)
  1. XOLAIR [Suspect]
     Active Substance: OMALIZUMAB
     Indication: Pruritus
     Route: 065
     Dates: start: 2022
  2. XOLAIR [Suspect]
     Active Substance: OMALIZUMAB
     Route: 050
     Dates: start: 20250214

REACTIONS (19)
  - Hypotension [Unknown]
  - Malaise [Unknown]
  - Contusion [Unknown]
  - Pruritus [Not Recovered/Not Resolved]
  - Haemorrhage [Unknown]
  - Rash [Unknown]
  - Acne [Unknown]
  - Dizziness [Not Recovered/Not Resolved]
  - Abdominal pain upper [Not Recovered/Not Resolved]
  - Diarrhoea [Not Recovered/Not Resolved]
  - Erythema [Unknown]
  - Confusional state [Unknown]
  - Pain of skin [Unknown]
  - Headache [Unknown]
  - Hyperhidrosis [Unknown]
  - Hypertension [Unknown]
  - Nausea [Unknown]
  - Onycholysis [Unknown]
  - Off label use [Unknown]
